FAERS Safety Report 4391774-7 (Version None)
Quarter: 2004Q3

REPORT INFORMATION
  Report Type: 
  Country: None (occurrence: None)
  Receive Date: 20040707
  Receipt Date: 20031219
  Transmission Date: 20050211
  Serious: Yes (Hospitalization, Disabling, Other)
  Sender: FDA-Public Use
  Company Number: US-MERCK-0312USA02227

PATIENT
  Age: 54 Year
  Sex: Female
  Weight: 95 kg

DRUGS (5)
  1. NORVASC [Concomitant]
     Indication: BLOOD PRESSURE
     Route: 065
     Dates: start: 19920101
  2. ECOTRIN [Concomitant]
     Route: 065
  3. LIPITOR [Concomitant]
     Indication: BLOOD CHOLESTEROL INCREASED
     Route: 065
     Dates: end: 20010601
  4. CALTRATE + D [Concomitant]
     Route: 065
  5. VIOXX [Suspect]
     Indication: ARTHRITIS
     Route: 048
     Dates: start: 20010701, end: 20020701

REACTIONS (24)
  - ANXIETY [None]
  - APHASIA [None]
  - BRADYCARDIA [None]
  - CARDIAC ARREST [None]
  - CHOLECYSTITIS CHRONIC [None]
  - CHOLELITHIASIS [None]
  - DIZZINESS [None]
  - EYE DISORDER [None]
  - EYE HAEMORRHAGE [None]
  - EYE INJURY [None]
  - HEADACHE [None]
  - HYPERTENSION [None]
  - HYPOAESTHESIA [None]
  - ISCHAEMIC STROKE [None]
  - LOSS OF EMPLOYMENT [None]
  - PNEUMOPERITONEUM [None]
  - SELF-MEDICATION [None]
  - SINUSITIS [None]
  - STRESS SYMPTOMS [None]
  - SYNCOPE VASOVAGAL [None]
  - TRANSIENT ISCHAEMIC ATTACK [None]
  - TREATMENT NONCOMPLIANCE [None]
  - VASCULAR CALCIFICATION [None]
  - VERTIGO [None]
